FAERS Safety Report 7700633-0 (Version None)
Quarter: 2011Q3

REPORT INFORMATION
  Report Type: 
  Country: None (occurrence: None)
  Receive Date: 20110822
  Receipt Date: 20110822
  Transmission Date: 20111222
  Serious: Yes (Life-Threatening)
  Sender: FDA-Public Use
  Company Number: None

PATIENT
  Age: 65 Year
  Sex: Female
  Weight: 118 kg

DRUGS (2)
  1. SODIUM CHLORIDE [Concomitant]
  2. VITAMIN K CONCENTRATE SOLUTION [Suspect]
     Indication: INTERNATIONAL NORMALISED RATIO INCREASED
     Dosage: 3 MG
     Route: 042
     Dates: start: 20110816, end: 20110816

REACTIONS (3)
  - PULSELESS ELECTRICAL ACTIVITY [None]
  - OXYGEN SATURATION DECREASED [None]
  - CARDIO-RESPIRATORY ARREST [None]
